FAERS Safety Report 8826169 (Version 2)
Quarter: 2014Q2

REPORT INFORMATION
  Report Type: Report from Study
  Country: US (occurrence: US)
  Receive Date: 20121008
  Receipt Date: 20140613
  Transmission Date: 20141212
  Serious: Yes (Hospitalization)
  Sender: FDA-Public Use
  Company Number: US-BRISTOL-MYERS SQUIBB COMPANY-17005570

PATIENT
  Age: 76 Year
  Sex: Male
  Weight: 87.9 kg

DRUGS (2)
  1. IPILIMUMAB [Suspect]
     Indication: MALIGNANT MELANOMA
     Dosage: LAST ADMIN DT ON 2JUL12(862MG)CYCLE20
     Route: 042
     Dates: start: 20110516
  2. GM-CSF [Suspect]
     Indication: MALIGNANT MELANOMA
     Dosage: LAST ADMIN 18SEP12?NO OF COURSES 23
     Route: 058
     Dates: start: 20110515

REACTIONS (2)
  - Pulmonary fibrosis [Not Recovered/Not Resolved]
  - Hyponatraemia [Not Recovered/Not Resolved]
